FAERS Safety Report 6585588-7 (Version None)
Quarter: 2010Q1

REPORT INFORMATION
  Report Type: 
  Country: None (occurrence: None)
  Receive Date: 20100217
  Receipt Date: 20100203
  Transmission Date: 20100710
  Serious: Yes (Other)
  Sender: FDA-Public Use
  Company Number: AU-MYLANLABS-2010S1001905

PATIENT
  Age: 51 Year
  Sex: Male

DRUGS (1)
  1. ELEVA [Suspect]
     Indication: DEPRESSION
     Route: 048
     Dates: start: 20100202, end: 20100202

REACTIONS (4)
  - CHEST PAIN [None]
  - LIP SWELLING [None]
  - PRODUCT SUBSTITUTION ISSUE [None]
  - RASH PRURITIC [None]
